FAERS Safety Report 4580187-0 (Version None)
Quarter: 2005Q1

REPORT INFORMATION
  Report Type: 
  Country: None (occurrence: None)
  Receive Date: 20050214
  Receipt Date: 20050203
  Transmission Date: 20050727
  Serious: Yes (Other)
  Sender: FDA-Public Use
  Company Number: PHEH2005US01629

PATIENT
  Age: 61 Year
  Sex: Female
  Weight: 80 kg

DRUGS (3)
  1. LEXAPRO [Concomitant]
     Indication: DEPRESSION
     Dates: start: 20041217, end: 20050208
  2. ZELNORM [Suspect]
     Indication: CONSTIPATION
     Dosage: 1/2 TAB OF 6MG  BID
     Route: 048
     Dates: start: 20050120, end: 20050202
  3. ZELNORM [Suspect]
     Dosage: 6 MG, BID
     Route: 048
     Dates: start: 20050203

REACTIONS (4)
  - CONSTIPATION [None]
  - HAEMATOCHEZIA [None]
  - HAEMORRHOIDS [None]
  - URINE OUTPUT INCREASED [None]
